FAERS Safety Report 4816645-0 (Version None)
Quarter: 2005Q4

REPORT INFORMATION
  Report Type: 
  Country: None (occurrence: None)
  Receive Date: 20051101
  Receipt Date: 20051020
  Transmission Date: 20060501
  Serious: Yes (Death)
  Sender: FDA-Public Use
  Company Number: JP-BRISTOL-MYERS SQUIBB COMPANY-13152178

PATIENT
  Age: 72 Year
  Sex: Male

DRUGS (1)
  1. BRIPLATIN [Suspect]
     Indication: BLADDER CANCER

REACTIONS (1)
  - SEPSIS [None]
